FAERS Safety Report 18604720 (Version 1)
Quarter: 2020Q4

REPORT INFORMATION
  Report Type: Spontaneous
  Country: US (occurrence: US)
  Receive Date: 20201211
  Receipt Date: 20201211
  Transmission Date: 20210114
  Serious: No
  Sender: FDA-Public Use
  Company Number: None

PATIENT
  Age: 65 Year
  Sex: Female
  Weight: 51.3 kg

DRUGS (19)
  1. FISH OIL [Concomitant]
     Active Substance: FISH OIL
  2. GEN TEAL [Concomitant]
  3. SYSTANE ULTRA [Concomitant]
     Active Substance: POLYETHYLENE GLYCOL 400\PROPYLENE GLYCOL
  4. METHOTREXATE (METHOTREXATE SODIUM) [Suspect]
     Active Substance: METHOTREXATE SODIUM
     Indication: SYSTEMIC LUPUS ERYTHEMATOSUS
     Dosage: ?          QUANTITY:6 TABLET(S);OTHER FREQUENCY:6 TABS ONCE A WEEK;?
     Route: 048
     Dates: start: 20201003, end: 20201107
  5. METHOTREXATE (METHOTREXATE SODIUM) [Suspect]
     Active Substance: METHOTREXATE SODIUM
     Indication: RHEUMATOID ARTHRITIS
     Dosage: ?          QUANTITY:6 TABLET(S);OTHER FREQUENCY:6 TABS ONCE A WEEK;?
     Route: 048
     Dates: start: 20201003, end: 20201107
  6. LATANOPROST. [Concomitant]
     Active Substance: LATANOPROST
  7. D3 DROPS [Concomitant]
  8. FIBER [Concomitant]
     Active Substance: PSYLLIUM HUSK
  9. DEXILANT [Concomitant]
     Active Substance: DEXLANSOPRAZOLE
  10. ASPIRIN. [Concomitant]
     Active Substance: ASPIRIN
  11. TUMS [Concomitant]
     Active Substance: CALCIUM CARBONATE
  12. SYNTHROID [Concomitant]
     Active Substance: LEVOTHYROXINE SODIUM
  13. TYLENOL EXTRA STRENGTH [Concomitant]
     Active Substance: ACETAMINOPHEN
  14. LEUCOVOR [Concomitant]
  15. VIVELLE-DOT [Concomitant]
     Active Substance: ESTRADIOL
  16. CALCIUM [Concomitant]
     Active Substance: CALCIUM
  17. CARTEOLOL HYDROCHLORIDE. [Concomitant]
     Active Substance: CARTEOLOL HYDROCHLORIDE
  18. MULTIVITAMINS [Concomitant]
     Active Substance: VITAMINS
  19. NABUMETONE. [Concomitant]
     Active Substance: NABUMETONE

REACTIONS (3)
  - Cold sweat [None]
  - Nausea [None]
  - Product substitution issue [None]

NARRATIVE: CASE EVENT DATE: 20201010
